FAERS Safety Report 6268999-9 (Version None)
Quarter: 2009Q3

REPORT INFORMATION
  Report Type: 
  Country: None (occurrence: None)
  Receive Date: 20090715
  Receipt Date: 20090708
  Transmission Date: 20100115
  Serious: Yes (Other)
  Sender: FDA-Public Use
  Company Number: A0795899A

PATIENT
  Age: 61 Year
  Sex: Female

DRUGS (10)
  1. ADVAIR HFA [Suspect]
     Indication: ASTHMA
     Dosage: 1PUFF TWICE PER DAY
     Route: 055
     Dates: start: 20080101
  2. UNSPECIFIED MEDICATION [Concomitant]
  3. ANTI-CHOLESTEROL MEDICATION [Concomitant]
  4. SYNTHROID [Concomitant]
  5. BLOOD PRESSURE MEDICATION [Concomitant]
  6. ZOLOFT [Concomitant]
  7. BUSPAR [Concomitant]
  8. XANAX [Concomitant]
  9. HYDROCHLOROTHIAZIDE [Concomitant]
  10. LOTREL [Concomitant]

REACTIONS (5)
  - ASTHMA [None]
  - DRUG INEFFECTIVE [None]
  - HERPES ZOSTER [None]
  - MEDICATION ERROR [None]
  - WHEEZING [None]
